FAERS Safety Report 20933871 (Version 1)
Quarter: 2022Q2

REPORT INFORMATION
  Report Type: Report from Study
  Country: CH (occurrence: None)
  Receive Date: 20220608
  Receipt Date: 20220608
  Transmission Date: 20220720
  Serious: Yes (Hospitalization)
  Sender: FDA-Public Use
  Company Number: CH-ROCHE-3091310

PATIENT
  Age: 72 Year
  Sex: Female
  Weight: 52.5 kg

DRUGS (7)
  1. CARBOPLATIN [Suspect]
     Active Substance: CARBOPLATIN
     Indication: Pleural mesothelioma malignant
     Dosage: 4-6 CYCLES?DATE OF LAST ADMINISTRATION BEFORE SAE: 13/APR/2022
     Route: 042
     Dates: start: 20220209
  2. PEMETREXED [Suspect]
     Active Substance: PEMETREXED
     Indication: Pleural mesothelioma malignant
     Dosage: DATE OF LAST ADMINISTRATION BEFORE SAE: 13/APR/2022?4-6 CYCLES
     Route: 042
     Dates: start: 20220209
  3. BEVACIZUMAB [Suspect]
     Active Substance: BEVACIZUMAB
     Indication: Pleural mesothelioma malignant
     Dosage: 400 MG/16 ML?DATE OF LAST ADMINISTRATION BEFORE SAE: 13/APR/2022
     Route: 042
     Dates: start: 20220209
  4. ATEZOLIZUMAB [Suspect]
     Active Substance: ATEZOLIZUMAB
     Indication: Pleural mesothelioma malignant
     Dosage: 1200 MG/20 ML?OF LAST ADMINISTRATION BEFORE SAE: 13/APR/2022
     Route: 041
     Dates: start: 20220209
  5. ATEZOLIZUMAB [Suspect]
     Active Substance: ATEZOLIZUMAB
     Route: 041
     Dates: start: 20220413
  6. CALCIUM CHLORIDE\POTASSIUM CHLORIDE\SODIUM LACTATE [Concomitant]
     Active Substance: CALCIUM CHLORIDE\POTASSIUM CHLORIDE\SODIUM LACTATE
  7. DALTEPARIN [Concomitant]
     Active Substance: DALTEPARIN

REACTIONS (1)
  - Syncope [Recovered/Resolved]

NARRATIVE: CASE EVENT DATE: 20220417
